FAERS Safety Report 8215834 (Version 2)
Quarter: 2012Q4

REPORT INFORMATION
  Report Type: 
  Country: FR (occurrence: FR)
  Receive Date: 20111031
  Receipt Date: 20120905
  Transmission Date: 20130627
  Serious: Yes (Hospitalization, Other)
  Sender: FDA-Public Use
  Company Number: FR-ELI_LILLY_AND_COMPANY-FR201110003989

PATIENT
  Age: 63 Year
  Sex: Female

DRUGS (4)
  1. FORSTEO [Suspect]
     Indication: OSTEOPOROSIS
     Dosage: 20 ug, qd
     Route: 058
     Dates: start: 20110308
  2. CALCIPRAT [Concomitant]
     Indication: OSTEOPOROSIS
     Dosage: UNK UNK, qd
     Dates: start: 201011
  3. UVEDOSE [Concomitant]
     Indication: OSTEOPOROSIS
     Dosage: UNK, monthly (1/M)
     Dates: start: 201011
  4. TARDYFERON [Concomitant]
     Indication: IRON DEFICIENCY ANAEMIA
     Dosage: UNK, qd
     Dates: start: 201108

REACTIONS (1)
  - Pseudarthrosis [Unknown]
